FAERS Safety Report 7097522-4 (Version None)
Quarter: 2010Q4

REPORT INFORMATION
  Report Type: 
  Country: None (occurrence: None)
  Receive Date: 20101111
  Receipt Date: 20101108
  Transmission Date: 20110411
  Serious: Yes (Other)
  Sender: FDA-Public Use
  Company Number: PHHY2010CA66972

PATIENT
  Sex: Female

DRUGS (3)
  1. ACLASTA/ZOLEDRONATE T29581+A+ [Suspect]
     Indication: OSTEOPOROSIS
     Dosage: 5 MG PER YEARLY
     Route: 042
     Dates: start: 20090324
  2. VITAMIN D [Concomitant]
     Dosage: 1000 MG
  3. CALCIUM [Concomitant]
     Dosage: 1000 MG

REACTIONS (2)
  - FALL [None]
  - LUMBAR VERTEBRAL FRACTURE [None]
